FAERS Safety Report 10637699 (Version 4)
Quarter: 2015Q1

REPORT INFORMATION
  Report Type: Report from Study
  Country: BR (occurrence: BR)
  Receive Date: 20141208
  Receipt Date: 20150212
  Transmission Date: 20150720
  Serious: Yes (Other)
  Sender: FDA-Public Use
  Company Number: PHHY2014BR123571

PATIENT
  Sex: Female
  Weight: 63 kg

DRUGS (13)
  1. AFINITOR [Suspect]
     Active Substance: EVEROLIMUS
     Dosage: 1 DF, QOD
     Route: 065
     Dates: start: 20141027
  2. AROMASIN [Concomitant]
     Active Substance: EXEMESTANE
     Indication: BREAST CANCER
     Dosage: 1 DF, QD
     Route: 065
     Dates: start: 201406
  3. AFINITOR [Suspect]
     Active Substance: EVEROLIMUS
     Dosage: 5 MG, UNK
     Route: 065
  4. ZETIA [Concomitant]
     Active Substance: EZETIMIBE
     Indication: BLOOD CHOLESTEROL INCREASED
     Dosage: 1 DF, QD
     Route: 065
  5. AFINITOR [Suspect]
     Active Substance: EVEROLIMUS
     Indication: BREAST CANCER
     Dosage: 10 MG, QD
     Route: 065
     Dates: start: 20140707, end: 20140912
  6. LASIX [Concomitant]
     Active Substance: FUROSEMIDE
     Indication: DIURETIC THERAPY
     Dosage: 0.5 DF, QOD
     Route: 065
     Dates: start: 20141011
  7. LOSARTAN [Concomitant]
     Active Substance: LOSARTAN
     Indication: HYPERTENSION
     Dosage: 1 DF, QD
     Route: 065
     Dates: start: 2011
  8. SIMVASTATIN. [Concomitant]
     Active Substance: SIMVASTATIN
     Indication: BLOOD CHOLESTEROL
     Dosage: 1 DF, QD
     Route: 065
  9. AMLODIPINE [Concomitant]
     Active Substance: AMLODIPINE BESYLATE
     Indication: HYPERTENSION
     Dosage: 1 DF, QD
     Route: 065
     Dates: start: 201404
  10. CARVEDILOL. [Concomitant]
     Active Substance: CARVEDILOL
     Indication: CARDIAC DISORDER
     Dosage: 2 DF, QD
     Route: 065
     Dates: start: 2011
  11. PANTOPRAZOLE [Concomitant]
     Active Substance: PANTOPRAZOLE SODIUM
     Indication: ABDOMINAL DISCOMFORT
     Route: 065
  12. HYDROCHLOROTHIAZIDE. [Concomitant]
     Active Substance: HYDROCHLOROTHIAZIDE
     Indication: HYPERTENSION
     Dosage: 1 DF, QD
     Route: 065
  13. MAREVAN [Concomitant]
     Active Substance: WARFARIN SODIUM
     Indication: THROMBOSIS
     Dosage: 1/4 TABLET QD
     Route: 065
     Dates: start: 201202

REACTIONS (22)
  - Decreased appetite [Recovered/Resolved]
  - Pneumonitis [Recovered/Resolved]
  - Hepatic congestion [Not Recovered/Not Resolved]
  - Malaise [Recovered/Resolved]
  - Visual impairment [Unknown]
  - Nausea [Recovered/Resolved]
  - Insomnia [Recovering/Resolving]
  - Dry mouth [Recovering/Resolving]
  - Headache [Recovering/Resolving]
  - Ageusia [Not Recovered/Not Resolved]
  - Fatigue [Recovering/Resolving]
  - Renal venous congestion [Unknown]
  - Dehydration [Unknown]
  - Hepatic enzyme increased [Recovering/Resolving]
  - Epistaxis [Recovering/Resolving]
  - Syncope [Unknown]
  - Faeces pale [Recovering/Resolving]
  - Weight decreased [Unknown]
  - Mouth haemorrhage [Recovered/Resolved]
  - Aphthous stomatitis [Recovering/Resolving]
  - Blood creatinine increased [Recovered/Resolved]
  - Cough [Recovered/Resolved]
